FAERS Safety Report 4369611-6 (Version None)
Quarter: 2004Q2

REPORT INFORMATION
  Report Type: 
  Country: None (occurrence: None)
  Receive Date: 20040527
  Receipt Date: 20040512
  Transmission Date: 20050107
  Serious: Yes (Death)
  Sender: FDA-Public Use
  Company Number: 2004-DE-02838GD

PATIENT

DRUGS (6)
  1. CYCLOPHOSPHAMIDE [Suspect]
     Indication: WEGENER'S GRANULOMATOSIS
     Dosage: PO
     Route: 048
  2. AZATHIOPRINE [Suspect]
     Indication: WEGENER'S GRANULOMATOSIS
  3. METHOTREXATE [Suspect]
     Indication: WEGENER'S GRANULOMATOSIS
  4. GLUCOCORTICOSTEROIDS (GLUCOCORTICOSTEROIDS) [Suspect]
     Indication: WEGENER'S GRANULOMATOSIS
  5. CYCLOSPORINE [Suspect]
     Indication: WEGENER'S GRANULOMATOSIS
  6. IMMUNOGLOBULINS (IMMUNOGLOBULINS) [Suspect]
     Indication: WEGENER'S GRANULOMATOSIS
     Dosage: IV
     Route: 042

REACTIONS (3)
  - DRUG INEFFECTIVE [None]
  - PNEUMONIA STAPHYLOCOCCAL [None]
  - RESPIRATORY FAILURE [None]
